FAERS Safety Report 6231699-5 (Version None)
Quarter: 2009Q2

REPORT INFORMATION
  Report Type: 
  Country: None (occurrence: None)
  Receive Date: 20090616
  Receipt Date: 20090603
  Transmission Date: 20091009
  Serious: Yes (Other)
  Sender: FDA-Public Use
  Company Number: KR-ELI_LILLY_AND_COMPANY-KR200905004971

PATIENT
  Age: 74 Year
  Sex: Male

DRUGS (3)
  1. ZYPREXA [Suspect]
     Indication: DEMENTIA ALZHEIMER'S TYPE
     Dosage: 2.5 MG, UNKNOWN
     Route: 065
  2. ZYPREXA [Suspect]
     Dosage: 5 MG, UNKNOWN
     Route: 065
  3. ZYPREXA [Suspect]
     Dosage: 2.5 MG, UNKNOWN
     Route: 065

REACTIONS (2)
  - HAEMOGLOBIN DECREASED [None]
  - NEUROLEPTIC MALIGNANT SYNDROME [None]
